FAERS Safety Report 9338108 (Version 1)
Quarter: 2013Q2

REPORT INFORMATION
  Report Type: Report from Study
  Country: CN (occurrence: CN)
  Receive Date: 20130610
  Receipt Date: 20130610
  Transmission Date: 20140414
  Serious: Yes (Other)
  Sender: FDA-Public Use
  Company Number: CN-ROCHE-1152292

PATIENT
  Age: 60 Year
  Sex: Male

DRUGS (3)
  1. PEG-INTERFERON ALFA 2A [Suspect]
     Indication: HEPATITIS C
     Route: 058
     Dates: start: 20120726, end: 20120906
  2. PEG-INTERFERON ALFA 2A [Suspect]
     Route: 058
     Dates: start: 20120913
  3. RIBAVIRIN (NON-ROCHE/NON-COMPARATOR) [Concomitant]
     Indication: HEPATITIS C
     Route: 048
     Dates: start: 20120726

REACTIONS (2)
  - White blood cell count decreased [Unknown]
  - Platelet count decreased [Unknown]
